FAERS Safety Report 6003494-3 (Version None)
Quarter: 2008Q4

REPORT INFORMATION
  Report Type: 
  Country: None (occurrence: None)
  Receive Date: 20081216
  Receipt Date: 20081210
  Transmission Date: 20090506
  Serious: Yes (Hospitalization)
  Sender: FDA-Public Use
  Company Number: JP-BRISTOL-MYERS SQUIBB COMPANY-14440242

PATIENT
  Age: 32 Year
  Sex: Female

DRUGS (2)
  1. TAXOL [Suspect]
     Indication: OVARIAN CANCER
     Route: 041
  2. COLCHICINE [Suspect]
     Dosage: DRUG WITHDAWN
     Route: 048

REACTIONS (1)
  - MYOPATHY [None]
